FAERS Safety Report 19502026 (Version 1)
Quarter: 2021Q3

REPORT INFORMATION
  Report Type: Spontaneous
  Country: US (occurrence: US)
  Receive Date: 20210707
  Receipt Date: 20210707
  Transmission Date: 20211014
  Serious: Yes (Other)
  Sender: FDA-Public Use
  Company Number: None

PATIENT
  Sex: Male

DRUGS (2)
  1. ARMODAFINIL 150 MG [Suspect]
     Active Substance: ARMODAFINIL
  2. MODAFINIL 100 MG [Suspect]
     Active Substance: MODAFINIL

REACTIONS (1)
  - Treatment failure [None]
